FAERS Safety Report 8969540 (Version 1)
Quarter: 2012Q4

REPORT INFORMATION
  Report Type: Spontaneous
  Country: US (occurrence: None)
  Receive Date: 20121210
  Receipt Date: 20121210
  Transmission Date: 20130627
  Serious: Yes (Other)
  Sender: FDA-Public Use
  Company Number: 2012110127

PATIENT
  Sex: Male

DRUGS (1)
  1. FELBAMATE [Suspect]
     Indication: INTRACTABLE EPILEPSY

REACTIONS (2)
  - Convulsion [None]
  - Product substitution issue [None]
